FAERS Safety Report 6908382-3 (Version None)
Quarter: 2010Q3

REPORT INFORMATION
  Report Type: 
  Country: None (occurrence: None)
  Receive Date: 20100803
  Receipt Date: 20100718
  Transmission Date: 20110219
  Serious: Yes (Other)
  Sender: FDA-Public Use
  Company Number: 2010P1000370

PATIENT
  Age: 9 Year
  Sex: Male
  Weight: 29.0302 kg

DRUGS (3)
  1. CLOTRIMAZOLE [Suspect]
     Indication: EAR INFECTION FUNGAL
     Dosage: 5 DROPS; BID
     Dates: start: 20100622, end: 20100718
  2. OFLOXICAN OTIC DROPS [Concomitant]
  3. PREV MEDS [Concomitant]

REACTIONS (3)
  - DEVICE OCCLUSION [None]
  - EAR HAEMORRHAGE [None]
  - EAR PAIN [None]
